FAERS Safety Report 19513497 (Version 1)
Quarter: 2021Q3

REPORT INFORMATION
  Report Type: Spontaneous
  Country: US (occurrence: US)
  Receive Date: 20210709
  Receipt Date: 20210709
  Transmission Date: 20211014
  Serious: Yes (Death, Life-Threatening, Hospitalization, Other)
  Sender: FDA-Public Use
  Company Number: US-ACCORD-230840

PATIENT
  Sex: Female

DRUGS (1)
  1. METHOTREXATE. [Suspect]
     Active Substance: METHOTREXATE
     Indication: RHEUMATOID ARTHRITIS

REACTIONS (7)
  - Oliguria [Fatal]
  - Interstitial lung disease [Unknown]
  - Septic shock [Fatal]
  - Cardiac arrest [Fatal]
  - Bronchopulmonary aspergillosis [Fatal]
  - Tracheobronchitis [Fatal]
  - Respiratory failure [Fatal]
